FAERS Safety Report 23789001 (Version 1)
Quarter: 2024Q2

REPORT INFORMATION
  Report Type: Report from Study
  Country: US (occurrence: US)
  Receive Date: 20240426
  Receipt Date: 20240426
  Transmission Date: 20240717
  Serious: Yes (Hospitalization, Other)
  Sender: FDA-Public Use
  Company Number: US-PPDUS-2024ST001999

PATIENT
  Age: 75 Year
  Sex: Female
  Weight: 64 kg

DRUGS (32)
  1. ELZONRIS [Suspect]
     Active Substance: TAGRAXOFUSP-ERZS
     Indication: Chronic myelomonocytic leukaemia
     Dosage: DAYS 1-3, NOT GIVEN ON DAY 3
     Route: 042
     Dates: start: 20240301
  2. DECITABINE [Suspect]
     Active Substance: DECITABINE
     Indication: Chronic myelomonocytic leukaemia
     Dosage: DAYS 1-5
     Route: 042
     Dates: start: 20240301
  3. COLACE [Concomitant]
     Active Substance: DOCUSATE SODIUM
     Indication: Constipation prophylaxis
     Route: 048
     Dates: start: 20240323, end: 20240323
  4. COLACE [Concomitant]
     Active Substance: DOCUSATE SODIUM
     Route: 048
     Dates: start: 20240325, end: 20240325
  5. SOLU-CORTEF [Concomitant]
     Active Substance: HYDROCORTISONE SODIUM SUCCINATE
     Indication: Product used for unknown indication
     Dates: start: 20240325, end: 20240325
  6. CRESTOR [Concomitant]
     Active Substance: ROSUVASTATIN CALCIUM
     Indication: Hyperlipidaemia
     Dates: start: 20240323, end: 20240325
  7. VALTREX [Concomitant]
     Active Substance: VALACYCLOVIR HYDROCHLORIDE
     Indication: Product used for unknown indication
     Dates: start: 20240323, end: 20240325
  8. VFEND [Concomitant]
     Active Substance: VORICONAZOLE
     Indication: Product used for unknown indication
     Dates: start: 20240323, end: 20240325
  9. XYLOCAINE [Concomitant]
     Active Substance: LIDOCAINE HYDROCHLORIDE\LIDOCAINE HYDROCHLORIDE ANHYDROUS
     Indication: Product used for unknown indication
     Dates: start: 20240325, end: 20240325
  10. ZOFRAN [Concomitant]
     Active Substance: ONDANSETRON HYDROCHLORIDE
     Indication: Product used for unknown indication
     Dosage: 4 MG/2 ML INJECTION 8 MG
     Dates: start: 20240322, end: 20240325
  11. Sodiumbicarbonate-sodium chloride [Concomitant]
     Indication: Product used for unknown indication
     Dosage: MOUTH WASH 15ML,4 TIMES DAILY
     Dates: start: 20240322, end: 20240325
  12. MAALOX ANTACID [Concomitant]
     Active Substance: ALUMINUM HYDROXIDE\DIMETHICONE\MAGNESIUM HYDROXIDE
     Indication: Product used for unknown indication
     Dosage: ORAL SUSPENSION 200 MG-200 MG-20 MG/5 ML - DISCONTINUED EVERY 4 HOURS PRN
     Dates: start: 20240322, end: 20240325
  13. TYLENOL [Concomitant]
     Active Substance: ACETAMINOPHEN
     Indication: Product used for unknown indication
     Dosage: DISCONTINUED EVERY 6 HOURS PRN
     Dates: start: 20240322, end: 20240325
  14. TYLENOL [Concomitant]
     Active Substance: ACETAMINOPHEN
     Dosage: EVERY 4 HOURS
     Dates: start: 20240322, end: 20240322
  15. IMODIUM [Concomitant]
     Active Substance: LOPERAMIDE HYDROCHLORIDE
     Indication: Product used for unknown indication
     Dates: start: 20240322, end: 20240325
  16. ROBITUSSIN (GUAIFENESIN) [Concomitant]
     Active Substance: GUAIFENESIN
     Indication: Product used for unknown indication
     Dosage: 10 MG-100 MG/5 ML ORAL SYRUP 10 ML - DISCONTINUED EVERY 4 HOURS PRN
     Dates: start: 20240322, end: 20240325
  17. SENOKOT-S [Concomitant]
     Active Substance: DOCUSATE SODIUM\SENNOSIDES
     Indication: Product used for unknown indication
     Dosage: SENNA-DOCUSATE (SENOKOT-S) TABLET 8.6 MG-50 MG 1 TABLET ,2 TIMES DAILY PRN
     Dates: start: 20240322, end: 20240325
  18. REMEDY CALAZIME [Concomitant]
     Indication: Product used for unknown indication
     Dosage: 0.44-20.6 % - DISCONTINUED 2 TIMES DAILY PRN
     Dates: start: 20240322, end: 20240325
  19. MAXIPIME [Concomitant]
     Active Substance: CEFEPIME HYDROCHLORIDE
     Indication: Product used for unknown indication
     Dosage: CEFEPIME (MAXIPIME) 2,000 MG IN SODIUM CHLORIDE 0.9% (NS) 50 ML IVPB (MBP/ADV), EVERY 8 HOURS
  20. ZYVOX [Concomitant]
     Active Substance: LINEZOLID
     Indication: Product used for unknown indication
     Dosage: LINEZOLID (ZYVOX) IN DEXTROSE 5% (D5W) IVPB 600 MG/300 ML (PREMIX),EVERY 2 HOURS
  21. BENADRYL [Concomitant]
     Active Substance: DIPHENHYDRAMINE HYDROCHLORIDE
     Indication: Product used for unknown indication
     Dosage: 50MG/ML, 25MG
     Dates: start: 20240322, end: 20240322
  22. SODIUM CHLORIDE [Concomitant]
     Active Substance: SODIUM CHLORIDE
     Indication: Product used for unknown indication
     Dates: start: 20240322, end: 20240323
  23. SODIUM CHLORIDE [Concomitant]
     Active Substance: SODIUM CHLORIDE
     Route: 040
     Dates: start: 20240322, end: 20240322
  24. SODIUM CHLORIDE [Concomitant]
     Active Substance: SODIUM CHLORIDE
     Dosage: NS(0.9%)-KVO
     Dates: start: 20240322, end: 20240325
  25. SODIUM CHLORIDE [Concomitant]
     Active Substance: SODIUM CHLORIDE
     Dosage: SODIUM CHLORIDE (NS) 0.9% IV FLUSH 250 ML
     Dates: start: 20240322, end: 20240325
  26. SODIUM CHLORIDE [Concomitant]
     Active Substance: SODIUM CHLORIDE
     Dosage: SODIUM CHLORIDE 0.9% (PF) (NS) INJECTION VIAL 0-20 ML
     Dates: start: 20240322, end: 20240325
  27. SODIUM CHLORIDE [Concomitant]
     Active Substance: SODIUM CHLORIDE
     Dosage: SODIUM CHLORIDE (NS) 0.9% IV FLUSH 25 ML
     Dates: start: 20240322, end: 20240322
  28. SODIUM CHLORIDE [Concomitant]
     Active Substance: SODIUM CHLORIDE
     Dosage: SODIUM CHLORIDE (NS) 0.9% IV KVO
     Dates: start: 20240322, end: 20240322
  29. SODIUM CHLORIDE [Concomitant]
     Active Substance: SODIUM CHLORIDE
     Dosage: SODIUM CHLORIDE (NS) 0.9% IV FLUSH 250 ML
     Dates: start: 20240322, end: 20240322
  30. SODIUM CHLORIDE [Concomitant]
     Active Substance: SODIUM CHLORIDE
     Dosage: SODIUM CHLORIDE 0.9% (PF) (NS) INJECTION VIAL 0-20 ML
     Dates: start: 20240322, end: 20240322
  31. SODIUM CHLORIDE [Concomitant]
     Active Substance: SODIUM CHLORIDE
     Dosage: SODIUM CHLORIDE (NS) 0.9% INJECTION FLUSH 100 ML
     Dates: start: 20240325, end: 20240325
  32. SODIUM CHLORIDE [Concomitant]
     Active Substance: SODIUM CHLORIDE
     Dosage: SODIUM CHLORIDE (NS) 0.9% INJECTION FLUSH 100 ML
     Dates: start: 20240325, end: 20240325

REACTIONS (1)
  - Febrile neutropenia [Recovered/Resolved]

NARRATIVE: CASE EVENT DATE: 20240322
